FAERS Safety Report 14158880 (Version 2)
Quarter: 2017Q4

REPORT INFORMATION
  Report Type: Report from Study
  Country: None (occurrence: GB)
  Receive Date: 20171106
  Receipt Date: 20171109
  Transmission Date: 20180321
  Serious: Yes (Death, Hospitalization)
  Sender: FDA-Public Use
  Company Number: GB-ABBVIE-17K-167-2152221-00

PATIENT
  Age: 57 Year
  Sex: Male
  Weight: 90.8 kg

DRUGS (1)
  1. HUMIRA [Suspect]
     Active Substance: ADALIMUMAB
     Indication: PSORIASIS
     Route: 058
     Dates: start: 20170124, end: 20170415

REACTIONS (7)
  - Metastases to liver [Fatal]
  - Pancreatic carcinoma [Fatal]
  - Metastases to lung [Fatal]
  - Dyspnoea [Not Recovered/Not Resolved]
  - Metastases to bone [Fatal]
  - Jaundice [Not Recovered/Not Resolved]
  - Abdominal distension [Not Recovered/Not Resolved]

NARRATIVE: CASE EVENT DATE: 20170704
